FAERS Safety Report 19483921 (Version 1)
Quarter: 2021Q3

REPORT INFORMATION
  Report Type: Spontaneous
  Country: US (occurrence: US)
  Receive Date: 20210701
  Receipt Date: 20210701
  Transmission Date: 20211014
  Serious: No
  Sender: FDA-Public Use
  Company Number: US-JNJFOC-20210700937

PATIENT
  Sex: Male

DRUGS (1)
  1. KETOCONAZOLE. [Suspect]
     Active Substance: KETOCONAZOLE
     Indication: PRODUCT USED FOR UNKNOWN INDICATION
     Route: 061

REACTIONS (4)
  - Intentional product misuse [Unknown]
  - Application site dryness [Recovering/Resolving]
  - Application site pruritus [Recovering/Resolving]
  - Product administered at inappropriate site [Unknown]
